FAERS Safety Report 16465028 (Version 1)
Quarter: 2019Q2

REPORT INFORMATION
  Report Type: Spontaneous
  Country: US (occurrence: US)
  Receive Date: 20190621
  Receipt Date: 20190621
  Transmission Date: 20190711
  Serious: Yes (Hospitalization, Other)
  Sender: FDA-Public Use
  Company Number: US-AKRON, INC.-2069470

PATIENT
  Age: 66 Year
  Sex: Female

DRUGS (1)
  1. MOXIFLOXACIN HYDROCHLORIDE. [Suspect]
     Active Substance: MOXIFLOXACIN HYDROCHLORIDE

REACTIONS (6)
  - Fatigue [Unknown]
  - Dyspnoea [Unknown]
  - Lethargy [Unknown]
  - Aphasia [Unknown]
  - Hospitalisation [Unknown]
  - Thrombotic thrombocytopenic purpura [Recovered/Resolved]
